FAERS Safety Report 9256771 (Version 3)
Quarter: 2013Q3

REPORT INFORMATION
  Report Type: Spontaneous
  Country: US (occurrence: US)
  Receive Date: 20130426
  Receipt Date: 20130927
  Transmission Date: 20140515
  Serious: Yes (Hospitalization, Other)
  Sender: FDA-Public Use
  Company Number: US-ASTRAZENECA-2013SE27750

PATIENT
  Age: 66 Year
  Sex: Female
  Weight: 70.3 kg

DRUGS (20)
  1. NEXIUM [Suspect]
     Indication: GASTROOESOPHAGEAL REFLUX DISEASE
     Route: 048
     Dates: start: 200110, end: 200303
  2. NEXIUM [Suspect]
     Indication: GASTROOESOPHAGEAL REFLUX DISEASE
     Route: 048
     Dates: start: 200110, end: 200303
  3. NEXIUM [Suspect]
     Indication: GASTROOESOPHAGEAL REFLUX DISEASE
     Route: 048
     Dates: start: 200303
  4. NEXIUM [Suspect]
     Indication: GASTROOESOPHAGEAL REFLUX DISEASE
     Route: 048
     Dates: start: 200303
  5. NEXIUM [Suspect]
     Indication: GASTROOESOPHAGEAL REFLUX DISEASE
     Dosage: 2 OR 3 TIMES A DAY ONCE IN A WEEK
     Route: 048
     Dates: start: 200303
  6. NEXIUM [Suspect]
     Indication: GASTROOESOPHAGEAL REFLUX DISEASE
     Dosage: 2 OR 3 TIMES A DAY ONCE IN A WEEK
     Route: 048
     Dates: start: 200303
  7. NEXIUM [Suspect]
     Indication: GASTROOESOPHAGEAL REFLUX DISEASE
     Route: 048
  8. NEXIUM [Suspect]
     Indication: GASTROOESOPHAGEAL REFLUX DISEASE
     Route: 048
  9. NEXIUM [Suspect]
     Indication: GASTROOESOPHAGEAL REFLUX DISEASE
     Route: 048
     Dates: start: 20050403
  10. NEXIUM [Suspect]
     Indication: GASTROOESOPHAGEAL REFLUX DISEASE
     Route: 048
     Dates: start: 20050403
  11. PRILOSEC [Suspect]
     Indication: GASTROOESOPHAGEAL REFLUX DISEASE
     Route: 048
  12. ACIPHEX [Concomitant]
     Dates: start: 2000
  13. TUMS [Concomitant]
  14. METOPROLOL [Concomitant]
     Indication: BLOOD PRESSURE ABNORMAL
  15. LORAZEPAM [Concomitant]
     Indication: ANXIETY
  16. LISINOPRIL [Concomitant]
     Indication: BLOOD PRESSURE ABNORMAL
  17. AMITRIPTYLINE [Concomitant]
     Indication: GASTROOESOPHAGEAL REFLUX DISEASE
  18. LEXAPRO [Concomitant]
     Indication: ANXIETY
     Dates: start: 20050309
  19. LEXAPRO [Concomitant]
     Indication: DEPRESSION
     Dates: start: 20050309
  20. ZANTAC [Concomitant]

REACTIONS (7)
  - Acetabulum fracture [Unknown]
  - Patella fracture [Unknown]
  - Haemarthrosis [Unknown]
  - Osteoporosis [Unknown]
  - Wrist fracture [Unknown]
  - Bone disorder [Unknown]
  - Hand fracture [Unknown]
